FAERS Safety Report 4478014-5 (Version None)
Quarter: 2004Q3

REPORT INFORMATION
  Report Type: 
  Country: None (occurrence: None)
  Receive Date: 20040923
  Receipt Date: 20040802
  Transmission Date: 20050211
  Serious: No
  Sender: FDA-Public Use
  Company Number: USA040874400

PATIENT
  Age: 74 Year
  Sex: Female

DRUGS (4)
  1. FORTEO [Suspect]
     Indication: OSTEOPOROSIS
     Dates: start: 20040730
  2. SYNTHROID [Concomitant]
  3. VITAMIN CAP [Concomitant]
  4. VITAMIN D [Concomitant]

REACTIONS (3)
  - BACK PAIN [None]
  - FEELING ABNORMAL [None]
  - NAUSEA [None]
